FAERS Safety Report 19444020 (Version 3)
Quarter: 2022Q1

REPORT INFORMATION
  Report Type: Spontaneous
  Country: US (occurrence: US)
  Receive Date: 20210621
  Receipt Date: 20220106
  Transmission Date: 20220423
  Serious: No
  Sender: FDA-Public Use
  Company Number: US-SHIONOGI, INC-2021000089

PATIENT
  Age: 27 Year
  Sex: Male

DRUGS (11)
  1. FETROJA [Suspect]
     Active Substance: CEFIDEROCOL SULFATE TOSYLATE
     Indication: Klebsiella bacteraemia
     Dosage: UNK
     Route: 065
     Dates: start: 20201123
  2. MEROPENEM [Concomitant]
     Active Substance: MEROPENEM
     Indication: Product used for unknown indication
     Route: 065
  3. CIPROFLOXACIN [Concomitant]
     Active Substance: CIPROFLOXACIN
     Indication: Pneumonia bacterial
     Route: 065
  4. CEFTAZIDIME [Concomitant]
     Active Substance: CEFTAZIDIME
     Indication: Pneumonia bacterial
     Dosage: UNK
     Route: 065
     Dates: start: 20201020, end: 20201024
  5. CEFTAZIDIME [Concomitant]
     Active Substance: CEFTAZIDIME
     Dosage: UNK
     Route: 065
     Dates: start: 20201203
  6. AVIBACTAM [Concomitant]
     Active Substance: AVIBACTAM
     Indication: Pneumonia bacterial
     Dosage: UNK
     Route: 065
     Dates: start: 20201020, end: 20201024
  7. AVIBACTAM [Concomitant]
     Active Substance: AVIBACTAM
     Dosage: UNK
     Route: 065
     Dates: start: 20201203
  8. ERAVACYCLINE [Concomitant]
     Active Substance: ERAVACYCLINE
     Indication: Pneumonia bacterial
     Dosage: UNK
     Route: 065
     Dates: start: 20201024
  9. AMIKACIN [Concomitant]
     Active Substance: AMIKACIN
     Indication: Pneumonia klebsiella
     Dosage: UNK
     Route: 065
     Dates: start: 20201123
  10. AMIKACIN [Concomitant]
     Active Substance: AMIKACIN
     Indication: Bacteraemia
  11. AZTREONAM [Concomitant]
     Active Substance: AZTREONAM
     Indication: Pneumonia bacterial
     Dosage: UNK
     Route: 065
     Dates: start: 20201203

REACTIONS (1)
  - Pathogen resistance [Unknown]
